FAERS Safety Report 21984648 (Version 1)
Quarter: 2023Q1

REPORT INFORMATION
  Report Type: Spontaneous
  Country: US (occurrence: US)
  Receive Date: 20230213
  Receipt Date: 20230213
  Transmission Date: 20230418
  Serious: No
  Sender: FDA-Public Use
  Company Number: US-SA-SAC20230209001864

PATIENT
  Age: 53 Year
  Sex: Female

DRUGS (1)
  1. DUPIXENT [Suspect]
     Active Substance: DUPILUMAB
     Indication: Dermatitis atopic
     Dosage: 300 MG, OTHER
     Route: 058
     Dates: start: 202211

REACTIONS (8)
  - Skin swelling [Recovered/Resolved]
  - Alopecia [Unknown]
  - Hair texture abnormal [Unknown]
  - Trichorrhexis [Unknown]
  - Onychoclasis [Unknown]
  - Nail disorder [Unknown]
  - Rash macular [Not Recovered/Not Resolved]
  - Arthralgia [Recovering/Resolving]

NARRATIVE: CASE EVENT DATE: 20221201
